FAERS Safety Report 5342106-9 (Version None)
Quarter: 2007Q2

REPORT INFORMATION
  Report Type: 
  Country: None (occurrence: None)
  Receive Date: 20070601
  Receipt Date: 20070522
  Transmission Date: 20071010
  Serious: Yes (Other)
  Sender: FDA-Public Use
  Company Number: US-ASTRAZENECA-2006UW28399

PATIENT
  Age: 54 Year
  Sex: Female
  Weight: 90.9 kg

DRUGS (4)
  1. ARIMIDEX [Suspect]
     Indication: PROPHYLAXIS
     Route: 048
  2. ADVAIR DISKUS 100/50 [Concomitant]
  3. SYNTHROID [Concomitant]
  4. ACCOLATE [Concomitant]
     Route: 048

REACTIONS (2)
  - HEPATIC ENZYME INCREASED [None]
  - TENDONITIS [None]
